FAERS Safety Report 6678569-6 (Version None)
Quarter: 2010Q2

REPORT INFORMATION
  Report Type: 
  Country: None (occurrence: None)
  Receive Date: 20100409
  Receipt Date: 20100409
  Transmission Date: 20101027
  Serious: Yes (Life-Threatening, Other)
  Sender: FDA-Public Use
  Company Number: None

PATIENT
  Age: 56 Year
  Sex: Female
  Weight: 56.246 kg

DRUGS (12)
  1. ARIMIDEX [Suspect]
     Indication: BREAST CANCER
     Dosage: 1 TAB DAILY PO
     Route: 048
     Dates: start: 20080808, end: 20100323
  2. LAMICTAL [Concomitant]
  3. ADDERALL 30 [Concomitant]
  4. XANAX [Concomitant]
  5. PROPRANOLOL [Concomitant]
  6. LEVOTHYROXINE [Concomitant]
  7. GABAPENTIN [Concomitant]
  8. CLONIDINE [Concomitant]
  9. VYVANSE [Concomitant]
  10. SEROQUEL [Concomitant]
  11. DEPLIN [Concomitant]
  12. NORVASC [Concomitant]

REACTIONS (12)
  - ASTHENIA [None]
  - BIPOLAR II DISORDER [None]
  - BONE DENSITY DECREASED [None]
  - CONDITION AGGRAVATED [None]
  - CONSTIPATION [None]
  - DEPRESSION [None]
  - FATIGUE [None]
  - HYPOMANIA [None]
  - INSOMNIA [None]
  - SKIN DISORDER [None]
  - SUICIDAL BEHAVIOUR [None]
  - THERAPEUTIC RESPONSE DECREASED [None]
